FAERS Safety Report 22085644 (Version 1)
Quarter: 2023Q1

REPORT INFORMATION
  Report Type: Spontaneous
  Country: US (occurrence: US)
  Receive Date: 20230310
  Receipt Date: 20230310
  Transmission Date: 20230418
  Serious: No
  Sender: FDA-Public Use
  Company Number: US-SA-SAC20230307001249

PATIENT
  Age: 31 Year
  Sex: Female

DRUGS (3)
  1. DUPIXENT [Suspect]
     Active Substance: DUPILUMAB
     Indication: Dermatitis atopic
     Dosage: 300MG QOW
     Route: 058
     Dates: start: 20200916
  2. EUCRISA [Concomitant]
     Active Substance: CRISABOROLE
     Dosage: UNK
  3. PIMECROLIMUS [Concomitant]
     Active Substance: PIMECROLIMUS
     Dosage: UNK

REACTIONS (2)
  - Sleep disorder [Unknown]
  - Dermatitis atopic [Unknown]
